FAERS Safety Report 6551749-6 (Version None)
Quarter: 2010Q1

REPORT INFORMATION
  Report Type: 
  Country: None (occurrence: None)
  Receive Date: 20100126
  Receipt Date: 20100115
  Transmission Date: 20100710
  Serious: Yes (Other)
  Sender: FDA-Public Use
  Company Number: US-ROCHE-680709

PATIENT
  Age: 64 Year
  Sex: Female

DRUGS (3)
  1. HERCEPTIN [Suspect]
     Route: 065
  2. HERCEPTIN [Suspect]
     Route: 065
  3. T-DM1 [Concomitant]
     Dosage: START DATE: 2007 OR 2008, END DATE: APRIL/MAY 2009
     Dates: end: 20090501

REACTIONS (2)
  - BLOOD BILIRUBIN INCREASED [None]
  - HIP FRACTURE [None]
